FAERS Safety Report 10698493 (Version 2)
Quarter: 2015Q1

REPORT INFORMATION
  Report Type: Spontaneous
  Country: US (occurrence: US)
  Receive Date: 20150108
  Receipt Date: 20150127
  Transmission Date: 20150721
  Serious: Yes (Other)
  Sender: FDA-Public Use
  Company Number: US-TEVA-532752USA

PATIENT
  Sex: Female

DRUGS (1)
  1. ANASTROZOLE. [Suspect]
     Active Substance: ANASTROZOLE
     Indication: PRODUCT USED FOR UNKNOWN INDICATION
     Dosage: DOSE AND FREQUENCY NOT PROVIDED

REACTIONS (1)
  - Deafness unilateral [Unknown]
